FAERS Safety Report 9986597 (Version 1)
Quarter: 2014Q1

REPORT INFORMATION
  Report Type: Spontaneous
  Country: US (occurrence: US)
  Receive Date: 20140307
  Receipt Date: 20140307
  Transmission Date: 20141002
  Serious: No
  Sender: FDA-Public Use
  Company Number: US-009507513-1403USA000527

PATIENT
  Sex: Female

DRUGS (2)
  1. NASONEX [Suspect]
     Dosage: CONTINUOSLY
  2. NASONEX [Suspect]
     Dosage: WHEN SHE NEED IT

REACTIONS (2)
  - Drug effect decreased [Unknown]
  - Drug prescribing error [Unknown]
